FAERS Safety Report 16097526 (Version 1)
Quarter: 2019Q1

REPORT INFORMATION
  Report Type: Spontaneous
  Country: CA (occurrence: CA)
  Receive Date: 20190320
  Receipt Date: 20190320
  Transmission Date: 20190418
  Serious: No
  Sender: FDA-Public Use
  Company Number: CA-PFIZER INC-2019110537

PATIENT
  Age: 47 Year
  Sex: Female

DRUGS (1)
  1. SYNAREL [Suspect]
     Active Substance: NAFARELIN ACETATE
     Dosage: UNK
     Dates: start: 20190215, end: 20190223

REACTIONS (25)
  - Vision blurred [Unknown]
  - Mood altered [Unknown]
  - Abdominal discomfort [Unknown]
  - Abdominal pain upper [Unknown]
  - Somnolence [Unknown]
  - Muscular weakness [Unknown]
  - Disturbance in attention [Unknown]
  - Insomnia [Unknown]
  - Sleep disorder [Unknown]
  - Dizziness [Unknown]
  - Hot flush [Unknown]
  - Diarrhoea [Unknown]
  - Night sweats [Unknown]
  - Visual impairment [Unknown]
  - Eye disorder [Unknown]
  - Fatigue [Unknown]
  - Depression [Unknown]
  - Feeling abnormal [Unknown]
  - Irritability [Unknown]
  - Decreased appetite [Unknown]
  - Peripheral swelling [Unknown]
  - Dyspnoea [Unknown]
  - Chills [Unknown]
  - Headache [Unknown]
  - Breast swelling [Unknown]
